FAERS Safety Report 6166241-0 (Version None)
Quarter: 2009Q2

REPORT INFORMATION
  Report Type: 
  Country: None (occurrence: None)
  Receive Date: 20090424
  Receipt Date: 20090420
  Transmission Date: 20091009
  Serious: Yes (Other)
  Sender: FDA-Public Use
  Company Number: PHHY2009GB14956

PATIENT
  Age: 64 Year
  Sex: Male

DRUGS (1)
  1. DICLOFENAC [Suspect]
     Indication: PAIN

REACTIONS (12)
  - ASCITES [None]
  - CARDIAC FAILURE [None]
  - CARDIOMEGALY [None]
  - CONSTIPATION [None]
  - DEHYDRATION [None]
  - DYSPNOEA [None]
  - DYSPNOEA PAROXYSMAL NOCTURNAL [None]
  - LEFT VENTRICULAR HYPERTROPHY [None]
  - LYMPHOEDEMA [None]
  - ORTHOPNOEA [None]
  - PLEURAL EFFUSION [None]
  - TRICUSPID VALVE INCOMPETENCE [None]
